FAERS Safety Report 15802776 (Version 1)
Quarter: 2019Q1

REPORT INFORMATION
  Report Type: Spontaneous
  Country: FI (occurrence: FI)
  Receive Date: 20190109
  Receipt Date: 20190109
  Transmission Date: 20190417
  Serious: Yes (Other)
  Sender: FDA-Public Use
  Company Number: FI-009507513-1901FIN000775

PATIENT
  Age: 30 Year
  Sex: Female

DRUGS (1)
  1. KEYTRUDA [Suspect]
     Active Substance: PEMBROLIZUMAB
     Indication: PERICARDIAL MESOTHELIOMA MALIGNANT
     Dosage: UNK
     Route: 042
     Dates: start: 20170719

REACTIONS (3)
  - Pregnancy with contraceptive device [Unknown]
  - Off label use [Unknown]
  - Abortion induced [Unknown]

NARRATIVE: CASE EVENT DATE: 20181116
